FAERS Safety Report 21560680 (Version 1)
Quarter: 2022Q4

REPORT INFORMATION
  Report Type: Report from Study
  Country: US (occurrence: US)
  Receive Date: 20221107
  Receipt Date: 20221107
  Transmission Date: 20230113
  Serious: No
  Sender: FDA-Public Use
  Company Number: US-ABBVIE-22K-163-4427885-00

PATIENT
  Age: 58 Year
  Sex: Female

DRUGS (3)
  1. SKYRIZI [Suspect]
     Active Substance: RISANKIZUMAB-RZAA
     Indication: Psoriasis
     Dosage: WEEK 0, STRENGTH 150 MG
     Route: 058
     Dates: start: 20220330, end: 20220330
  2. SKYRIZI [Suspect]
     Active Substance: RISANKIZUMAB-RZAA
     Dosage: WEEK 4, STRENGTH 150 MG
     Route: 058
     Dates: start: 20220426, end: 20220426
  3. SKYRIZI [Suspect]
     Active Substance: RISANKIZUMAB-RZAA
     Dosage: STRENGTH 150 MG
     Route: 058
     Dates: start: 20220719

REACTIONS (8)
  - Stress [Unknown]
  - Pain in extremity [Unknown]
  - Arthralgia [Unknown]
  - Loss of personal independence in daily activities [Recovering/Resolving]
  - Inappropriate schedule of product administration [Unknown]
  - Psoriasis [Unknown]
  - Fatigue [Unknown]
  - Therapeutic product effect decreased [Unknown]

NARRATIVE: CASE EVENT DATE: 20220426
